FAERS Safety Report 15566629 (Version 1)
Quarter: 2018Q4

REPORT INFORMATION
  Report Type: Spontaneous
  Country: US (occurrence: US)
  Receive Date: 20181030
  Receipt Date: 20181030
  Transmission Date: 20190205
  Serious: Yes (Other)
  Sender: FDA-Public Use
  Company Number: None

PATIENT
  Age: 64 Year
  Sex: Male
  Weight: 126 kg

DRUGS (1)
  1. TESTOSTERONE PELLET [Suspect]
     Active Substance: TESTOSTERONE
     Route: 058
     Dates: start: 20180822, end: 20181022

REACTIONS (2)
  - Wound [None]
  - Device expulsion [None]

NARRATIVE: CASE EVENT DATE: 20180822
